FAERS Safety Report 5316314-7 (Version None)
Quarter: 2007Q2

REPORT INFORMATION
  Report Type: 
  Country: None (occurrence: None)
  Receive Date: 20070430
  Receipt Date: 20070417
  Transmission Date: 20071010
  Serious: Yes (Hospitalization, Other)
  Sender: FDA-Public Use
  Company Number: US019901

PATIENT
  Age: 53 Year
  Sex: Male

DRUGS (8)
  1. PROVIGIL [Suspect]
     Indication: FATIGUE
     Dates: start: 20070119, end: 20070202
  2. REBIF [Suspect]
     Indication: MULTIPLE SCLEROSIS
     Dosage: 44 UG THREE TIMES WEEKLY SUBCUTANEOUS
     Route: 058
     Dates: start: 20050616
  3. AMINOPYRIDINE [Suspect]
     Indication: GAIT DISTURBANCE
     Dates: start: 20061201, end: 20070202
  4. IBUPROFEN [Concomitant]
  5. FLUOXETINE [Concomitant]
  6. ASPIRIN [Concomitant]
  7. CLONAZEPAM [Concomitant]
  8. LIPITOR [Concomitant]

REACTIONS (2)
  - BLOOD GLUCOSE DECREASED [None]
  - CONVULSION [None]
